FAERS Safety Report 9206919 (Version 2)
Quarter: 2014Q1

REPORT INFORMATION
  Report Type: Spontaneous
  Country: US (occurrence: US)
  Receive Date: 20130403
  Receipt Date: 20140102
  Transmission Date: 20141002
  Serious: Yes (Hospitalization, Other)
  Sender: FDA-Public Use
  Company Number: US-BAYER-2013-040542

PATIENT
  Age: 37 Year
  Sex: Female

DRUGS (4)
  1. YAZ [Suspect]
     Dosage: UNK
     Dates: start: 20080918, end: 20081218
  2. OCELLA [Suspect]
     Dosage: UNK
     Dates: start: 20081218, end: 200909
  3. OMEPRAZOLE [Concomitant]
  4. BENTYL [Concomitant]

REACTIONS (5)
  - Gallbladder disorder [None]
  - Cholecystitis acute [None]
  - Bile duct stone [None]
  - Injury [None]
  - Pain [None]
